FAERS Safety Report 11925940 (Version 2)
Quarter: 2016Q1

REPORT INFORMATION
  Report Type: Report from Study
  Country: CA (occurrence: CA)
  Receive Date: 20160119
  Receipt Date: 20160222
  Transmission Date: 20160526
  Serious: Yes (Hospitalization)
  Sender: FDA-Public Use
  Company Number: CA-ROCHE-1696482

PATIENT
  Age: 59 Year
  Sex: Female

DRUGS (9)
  1. DOCUSATE [Concomitant]
     Active Substance: DOCUSATE
  2. DEXILANT [Concomitant]
     Active Substance: DEXLANSOPRAZOLE
     Route: 065
  3. NOVO-GESIC (CANADA) [Concomitant]
  4. PEGASYS [Suspect]
     Active Substance: PEGINTERFERON ALFA-2A
     Indication: HEPATITIS C
     Route: 058
     Dates: start: 20141119, end: 20150211
  5. VITAMIN D3 [Concomitant]
     Active Substance: CHOLECALCIFEROL
  6. FUROSEMIDE. [Concomitant]
     Active Substance: FUROSEMIDE
  7. SOVALDI [Suspect]
     Active Substance: SOFOSBUVIR
     Indication: HEPATITIS C
     Dosage: THERAPY DURATION: 85 DAYS
     Route: 065
     Dates: start: 20141119, end: 20150211
  8. NEURONTIN [Concomitant]
     Active Substance: GABAPENTIN
  9. POTASSIUM CHLORIDE. [Concomitant]
     Active Substance: POTASSIUM CHLORIDE

REACTIONS (8)
  - Hypoaesthesia [Recovering/Resolving]
  - Sciatic nerve injury [Recovering/Resolving]
  - Anaemia [Recovering/Resolving]
  - Drug ineffective [Unknown]
  - Peripheral swelling [Recovering/Resolving]
  - Joint swelling [Recovering/Resolving]
  - Arthralgia [Recovering/Resolving]
  - Peripheral nerve lesion [Unknown]

NARRATIVE: CASE EVENT DATE: 20150211
